FAERS Safety Report 4815189-X (Version None)
Quarter: 2005Q4

REPORT INFORMATION
  Report Type: 
  Country: None (occurrence: None)
  Receive Date: 20051027
  Receipt Date: 20051024
  Transmission Date: 20060501
  Serious: Yes (Other)
  Sender: FDA-Public Use
  Company Number: 005898

PATIENT
  Age: 62 Year
  Sex: Male
  Weight: 90.7 kg

DRUGS (7)
  1. DIAMOX [Suspect]
     Indication: GLAUCOMA
  2. DEPAKOTE [Concomitant]
  3. FLECAINIDE ACETATE [Concomitant]
  4. PREVACID [Concomitant]
  5. SYNTHROID [Concomitant]
  6. BLOOD PRESSURE MEDICATION [Concomitant]
  7. EYE DROPS [Concomitant]

REACTIONS (1)
  - AMNESIA [None]
